FAERS Safety Report 18893297 (Version 2)
Quarter: 2021Q4

REPORT INFORMATION
  Report Type: Spontaneous
  Country: GB (occurrence: GB)
  Receive Date: 20210215
  Receipt Date: 20211229
  Transmission Date: 20220303
  Serious: Yes (Hospitalization)
  Sender: FDA-Public Use
  Company Number: GB-AMGEN-GBRSP2021020091

PATIENT
  Age: 35 Year
  Sex: Female

DRUGS (33)
  1. XGEVA [Suspect]
     Active Substance: DENOSUMAB
     Indication: Metastases to bone
     Dosage: 120 MILLIGRAM, Q3WK
     Route: 042
     Dates: start: 20160721
  2. TRASTUZUMAB [Suspect]
     Active Substance: TRASTUZUMAB
     Indication: Breast cancer metastatic
     Dosage: 567 MILLIGRAM
     Route: 042
     Dates: start: 20160722, end: 20160722
  3. TRASTUZUMAB [Suspect]
     Active Substance: TRASTUZUMAB
     Dosage: 420 MILLIGRAM, Q3WK
     Route: 041
     Dates: start: 20160812, end: 20161017
  4. TRASTUZUMAB [Suspect]
     Active Substance: TRASTUZUMAB
     Dosage: 441 MILLIGRAM, Q3WK
     Route: 042
     Dates: start: 20161115, end: 20171116
  5. CAPECITABINE [Suspect]
     Active Substance: CAPECITABINE
     Indication: Breast cancer metastatic
     Dosage: 1950 MILLIGRAM, BID
     Route: 048
     Dates: start: 20180905, end: 20190327
  6. DOCETAXEL [Suspect]
     Active Substance: DOCETAXEL
     Indication: Breast cancer metastatic
     Dosage: 140 MILLIGRAM, Q3WK
     Route: 042
     Dates: start: 20160812, end: 20160812
  7. DOCETAXEL [Suspect]
     Active Substance: DOCETAXEL
     Dosage: 105 MILLIGRAM, Q3WK
     Route: 042
     Dates: start: 20160723, end: 20160723
  8. DOCETAXEL [Suspect]
     Active Substance: DOCETAXEL
     Dosage: 190 MILLIGRAM, Q3WK
     Route: 042
     Dates: start: 20160902, end: 20161115
  9. ADO-TRASTUZUMAB EMTANSINE [Suspect]
     Active Substance: ADO-TRASTUZUMAB EMTANSINE
     Indication: Breast cancer metastatic
     Dosage: 3.6 MILLIGRAM/SQ. METER, Q3WK
     Route: 042
     Dates: start: 20171212
  10. PERTUZUMAB [Suspect]
     Active Substance: PERTUZUMAB
     Indication: Breast cancer metastatic
     Dosage: 840 MILLIGRAM, QD
     Route: 042
     Dates: start: 20160721, end: 20160721
  11. PERTUZUMAB [Suspect]
     Active Substance: PERTUZUMAB
     Dosage: 420 MILLIGRAM, Q3WK (MAINTENANCE DOSE)
     Route: 042
     Dates: start: 20160811
  12. ERIBULIN MESYLATE [Suspect]
     Active Substance: ERIBULIN MESYLATE
     Indication: Breast cancer metastatic
     Dosage: 1.23 MILLIGRAM/SQ. METER, Q3WK
     Route: 042
     Dates: start: 20190516, end: 20190516
  13. EPIRUBICIN HYDROCHLORIDE [Suspect]
     Active Substance: EPIRUBICIN HYDROCHLORIDE
     Indication: Breast cancer metastatic
     Dosage: 22.5 MILLIGRAM, QWK
     Route: 042
     Dates: start: 20200512, end: 20200518
  14. EPIRUBICIN HYDROCHLORIDE [Suspect]
     Active Substance: EPIRUBICIN HYDROCHLORIDE
     Dosage: 22.5 MG/M2, QWK
     Route: 042
     Dates: start: 20200706, end: 20200820
  15. EPIRUBICIN HYDROCHLORIDE [Suspect]
     Active Substance: EPIRUBICIN HYDROCHLORIDE
     Dosage: 30 MG/M2, QWK
     Route: 042
     Dates: start: 20200527, end: 20200624
  16. SODIUM CHLORIDE [Concomitant]
     Active Substance: SODIUM CHLORIDE
     Indication: Abdominal pain
     Dosage: 0.9 PERCENT
     Route: 042
     Dates: start: 20201215
  17. LORAZEPAM [Concomitant]
     Active Substance: LORAZEPAM
     Indication: Abdominal pain
     Dosage: 1 MILLIGRAM, QD
     Route: 048
     Dates: start: 20201215
  18. GABAPENTIN [Concomitant]
     Active Substance: GABAPENTIN
     Indication: Abdominal pain
     Dosage: 400 MILLIGRAM, TID
     Route: 048
     Dates: start: 20201215
  19. DEXAMETHASONE [Concomitant]
     Active Substance: DEXAMETHASONE
     Indication: Abdominal pain
     Dosage: 6 MILLIGRAM, QD
     Route: 048
     Dates: start: 20201215
  20. MIDAZOLAM [Concomitant]
     Active Substance: MIDAZOLAM
     Indication: Abdominal pain
     Dosage: 2.5 MILLIGRAM
     Route: 058
  21. BECLOMETHASONE DIPROPIONATE [Concomitant]
     Active Substance: BECLOMETHASONE DIPROPIONATE
     Dosage: 200 MILLIGRAM, BID
     Route: 055
  22. BENZYDAMINE [Concomitant]
     Active Substance: BENZYDAMINE
     Dosage: 0.15 PERCENT, QID
     Route: 048
  23. AMLODIPINE [Concomitant]
     Active Substance: AMLODIPINE BESYLATE
     Indication: Abdominal pain
     Dosage: 5 MILLIGRAM, QD
     Route: 048
     Dates: start: 20201217
  24. LEVOMEPROMAZINE [Concomitant]
     Active Substance: LEVOMEPROMAZINE
     Indication: Abdominal pain
     Dosage: 3.13 MILLIGRAM
     Route: 058
  25. OXYCODONE [Concomitant]
     Active Substance: OXYCODONE
     Indication: Abdominal pain
     Dosage: 10 MILLIGRAM
     Route: 058
  26. VENLAFAXINE [Concomitant]
     Active Substance: VENLAFAXINE HYDROCHLORIDE
     Indication: Abdominal pain
     Dosage: 75 MILLIGRAM, BID
     Route: 048
     Dates: start: 20201215
  27. EPIRUBICIN [Concomitant]
     Active Substance: EPIRUBICIN
     Indication: Breast cancer metastatic
     Dosage: 22.5 MILLIGRAM/SQ. METER, QWK
     Route: 042
     Dates: start: 20200512, end: 20200820
  28. CLOTRIMAZOLE [Concomitant]
     Active Substance: CLOTRIMAZOLE
     Indication: Abdominal pain
     Dosage: 1 PERCENT
     Route: 061
     Dates: start: 20201216
  29. ALBUTEROL [Concomitant]
     Active Substance: ALBUTEROL
     Indication: Dyspnoea
     Dosage: 100 MICROGRAM, QID
     Route: 055
  30. LANSOPRAZOLE [Concomitant]
     Active Substance: LANSOPRAZOLE
     Indication: Abdominal pain
     Dosage: 30 MILLIGRAM, QD
     Route: 048
     Dates: start: 20201215
  31. DOCUSATE [Concomitant]
     Active Substance: DOCUSATE
     Indication: Abdominal pain
     Dosage: 200 MILLIGRAM, BID
     Route: 048
     Dates: start: 20201215
  32. GLYCOPYRRONIUM [Concomitant]
     Active Substance: GLYCOPYRRONIUM
     Indication: Dyspnoea
     Dosage: 200 MILLIGRAM
     Route: 058
  33. HALOPERIDOL [Concomitant]
     Active Substance: HALOPERIDOL
     Indication: Abdominal pain
     Dosage: 0.5 MILLIGRAM
     Route: 058

REACTIONS (5)
  - Pyrexia [Recovered/Resolved]
  - Pyrexia [Recovered/Resolved]
  - Headache [Recovered/Resolved]
  - Intentional product use issue [Unknown]
  - Off label use [Unknown]

NARRATIVE: CASE EVENT DATE: 20190113
